FAERS Safety Report 5873314-6 (Version None)
Quarter: 2008Q3

REPORT INFORMATION
  Report Type: 
  Country: None (occurrence: None)
  Receive Date: 20080908
  Receipt Date: 20080829
  Transmission Date: 20090109
  Serious: Yes (Hospitalization)
  Sender: FDA-Public Use
  Company Number: CA-BAYER-200812983BCC

PATIENT
  Age: 57 Year
  Sex: Male
  Weight: 57 kg

DRUGS (3)
  1. PHILLIPS MILK OF MAGNESIA CHERRY FLAVOR [Suspect]
     Indication: DYSPEPSIA
     Dates: start: 20071101
  2. MORPHINE [Concomitant]
  3. TORADOL [Concomitant]

REACTIONS (2)
  - ABDOMINAL PAIN UPPER [None]
  - DYSSTASIA [None]
